FAERS Safety Report 23487272 (Version 1)
Quarter: 2024Q1

REPORT INFORMATION
  Report Type: Report from Study
  Country: US (occurrence: US)
  Receive Date: 20240206
  Receipt Date: 20240206
  Transmission Date: 20240410
  Serious: Yes (Other)
  Sender: FDA-Public Use
  Company Number: US-AMGEN-USASP2024020653

PATIENT
  Age: 45 Year
  Sex: Female

DRUGS (7)
  1. AIMOVIG [Suspect]
     Active Substance: ERENUMAB-AOOE
     Indication: Migraine
     Dosage: 70 MILLIGRAM, QMO
     Route: 065
     Dates: start: 202306, end: 20240105
  2. METOPROLOL [Concomitant]
     Active Substance: METOPROLOL
     Indication: Ventricular extrasystoles
     Dosage: 25 GRAM
     Route: 065
  3. IBUPROFEN [Concomitant]
     Active Substance: IBUPROFEN
     Indication: Arthralgia
     Dosage: UNK
     Route: 065
  4. OMEPRAZOLE [Concomitant]
     Active Substance: OMEPRAZOLE
     Indication: Dyspepsia
     Dosage: UNK
     Route: 065
  5. SULFAMETHOXAZOLE\TRIMETHOPRIM [Concomitant]
     Active Substance: SULFAMETHOXAZOLE\TRIMETHOPRIM
     Indication: Urinary tract infection
     Dosage: UNK
     Route: 065
  6. PYRIDIUM [Concomitant]
     Active Substance: PHENAZOPYRIDINE
     Indication: Urinary tract infection
     Dosage: UNK
     Route: 065
  7. TUMS [Concomitant]
     Active Substance: CALCIUM CARBONATE
     Indication: Dyspepsia
     Dosage: UNK

REACTIONS (32)
  - Corneal abrasion [Unknown]
  - Atrial fibrillation [Unknown]
  - Hypotension [Unknown]
  - Arthralgia [Unknown]
  - Pain in extremity [Unknown]
  - Pain [Unknown]
  - Alopecia [Unknown]
  - Pruritus [Unknown]
  - Constipation [Unknown]
  - Nausea [Unknown]
  - Vomiting [Unknown]
  - Weight decreased [Unknown]
  - Ventricular extrasystoles [Unknown]
  - Dizziness [Unknown]
  - Palpitations [Unknown]
  - Heart rate increased [Unknown]
  - Feeling hot [Unknown]
  - Peripheral coldness [Unknown]
  - Pyrexia [Unknown]
  - Insomnia [Unknown]
  - Dyspnoea [Unknown]
  - Fatigue [Unknown]
  - Gait disturbance [Unknown]
  - Chest pain [Unknown]
  - Urinary tract infection [Unknown]
  - Tooth fracture [Unknown]
  - Tinnitus [Unknown]
  - Anxiety [Unknown]
  - Brain fog [Unknown]
  - Dry eye [Unknown]
  - Retching [Unknown]
  - Decreased appetite [Unknown]

NARRATIVE: CASE EVENT DATE: 20230101
